FAERS Safety Report 26000230 (Version 1)
Quarter: 2025Q4

REPORT INFORMATION
  Report Type: Report from Study
  Country: US (occurrence: US)
  Receive Date: 20251105
  Receipt Date: 20251105
  Transmission Date: 20260117
  Serious: Yes (Other)
  Sender: PFIZER
  Company Number: US-PFIZER INC-202500213827

PATIENT
  Age: 68 Year
  Sex: Female

DRUGS (4)
  1. ELRANATAMAB [Suspect]
     Active Substance: ELRANATAMAB
     Indication: Primary amyloidosis
     Dosage: 12 MG ON CYCLIC 1, DAY 1
     Route: 058
  2. ELRANATAMAB [Suspect]
     Active Substance: ELRANATAMAB
     Dosage: 32 MG ON CYCLIC 1, DAY 3
     Route: 058
  3. ELRANATAMAB [Suspect]
     Active Substance: ELRANATAMAB
     Dosage: 76 MG ON CYCLIC 1, DAY 8
     Route: 058
  4. ELRANATAMAB [Suspect]
     Active Substance: ELRANATAMAB
     Dosage: WEEKLY IN 28-DAY CYCLES
     Route: 058

REACTIONS (2)
  - Cytokine release syndrome [Recovered/Resolved]
  - Neutropenia [Unknown]
